FAERS Safety Report 8721703 (Version 2)
Quarter: 2012Q4

REPORT INFORMATION
  Report Type: 
  Country: GB (occurrence: GB)
  Receive Date: 20120814
  Receipt Date: 20120829
  Transmission Date: 20130627
  Serious: Yes (Other)
  Sender: FDA-Public Use
  Company Number: GB-RANBAXY-2012R1-58838

PATIENT
  Age: 39 Year
  Sex: Male
  Weight: 80.6 kg

DRUGS (2)
  1. CITALOPRAM [Suspect]
     Indication: PRODUCT USED FOR UNKNOWN INDICATION
     Dosage: UNK
     Route: 065
  2. ZOCOR [Interacting]
     Indication: LIPIDS
     Dosage: UNK
     Route: 048
     Dates: start: 20120602, end: 20120622

REACTIONS (2)
  - Feeling abnormal [Recovered/Resolved]
  - Drug interaction [Recovered/Resolved]
